FAERS Safety Report 4333191-1 (Version None)
Quarter: 2004Q2

REPORT INFORMATION
  Report Type: 
  Country: None (occurrence: None)
  Receive Date: 20040402
  Receipt Date: 20040316
  Transmission Date: 20050107
  Serious: Yes (Hospitalization)
  Sender: FDA-Public Use
  Company Number: 2004-113978-NL

PATIENT
  Age: 28 Year
  Sex: Male

DRUGS (3)
  1. DANAPAROID SODIUM [Suspect]
     Dosage: DP
     Dates: start: 20040220, end: 20040224
  2. HEPARIN SODIUM [Suspect]
     Indication: THROMBOSIS
     Dates: start: 20040210, end: 20040220
  3. HEPARIN-FRACTION, SODIUM SALT [Concomitant]

REACTIONS (4)
  - CONDITION AGGRAVATED [None]
  - GENERAL PHYSICAL HEALTH DETERIORATION [None]
  - THROMBOCYTOPENIA [None]
  - VENA CAVA THROMBOSIS [None]
